FAERS Safety Report 25830803 (Version 1)
Quarter: 2025Q3

REPORT INFORMATION
  Report Type: Spontaneous
  Country: EU (occurrence: EU)
  Receive Date: 20250922
  Receipt Date: 20250922
  Transmission Date: 20251021
  Serious: Yes (Death, Life-Threatening, Hospitalization, Disabling, Other)
  Sender: AUROBINDO
  Company Number: EU-PFIZER FR-LABALTER-201902757 INC-2019188366

PATIENT
  Age: 61 Year
  Sex: Female
  Weight: 77 kg

DRUGS (7)
  1. IVABRADINE [Suspect]
     Active Substance: IVABRADINE
     Indication: Suicide attempt
     Route: 048
  2. IVABRADINE [Suspect]
     Active Substance: IVABRADINE
     Route: 048
  3. PREGABALIN [Suspect]
     Active Substance: PREGABALIN
     Indication: Product used for unknown indication
     Route: 048
  4. ZOPICLONE [Suspect]
     Active Substance: ZOPICLONE
     Indication: Product used for unknown indication
     Route: 048
  5. ATRACURIUM BESYLATE [Suspect]
     Active Substance: ATRACURIUM BESYLATE
     Indication: Product used for unknown indication
     Route: 065
  6. ATROPINE [Suspect]
     Active Substance: ATROPINE
     Indication: Product used for unknown indication
     Route: 065
  7. MIDAZOLAM [Suspect]
     Active Substance: MIDAZOLAM
     Indication: Product used for unknown indication
     Route: 065

REACTIONS (20)
  - Cardiac arrest [Fatal]
  - Somnolence [Fatal]
  - Drug level increased [Fatal]
  - Toxicity to various agents [Fatal]
  - Completed suicide [Fatal]
  - Hypotension [Fatal]
  - Suicide attempt [Fatal]
  - Cardiac hypertrophy [Fatal]
  - Cardiomyopathy [Fatal]
  - Multiple organ dysfunction syndrome [Fatal]
  - Bradycardia [Fatal]
  - Respiratory depression [Fatal]
  - Dilated cardiomyopathy [Fatal]
  - Overdose [Fatal]
  - Intentional overdose [Fatal]
  - Poisoning [Fatal]
  - Intentional product use issue [Fatal]
  - Intentional product misuse [Fatal]
  - Cardiac failure [Unknown]
  - Bundle branch block left [Unknown]

NARRATIVE: CASE EVENT DATE: 20190101
